FAERS Safety Report 14679274 (Version 1)
Quarter: 2018Q1

REPORT INFORMATION
  Report Type: Spontaneous
  Country: US (occurrence: US)
  Receive Date: 20180326
  Receipt Date: 20180326
  Transmission Date: 20180509
  Serious: No
  Sender: FDA-Public Use
  Company Number: US-PFIZER INC-2018122244

PATIENT
  Age: 64 Year
  Sex: Female
  Weight: 73.94 kg

DRUGS (3)
  1. PRISTIQ EXTENDED-RELEASE [Suspect]
     Active Substance: DESVENLAFAXINE SUCCINATE
     Indication: DEPRESSION
     Dosage: 100 MG, 1X/DAY (100MG TABLET ONCE A DAY BY MOUTH)
     Route: 048
     Dates: start: 2016
  2. QUETIAPINE FUMARATE. [Concomitant]
     Active Substance: QUETIAPINE FUMARATE
     Indication: AFFECTIVE DISORDER
     Dosage: UNK
     Dates: start: 201801
  3. VITAMIN D [Concomitant]
     Active Substance: CHOLECALCIFEROL
     Indication: VITAMIN D DEFICIENCY
     Dosage: 1000 MG, 1X/DAY (1000MG CAPSULES ONCE A DAY BY MOUTH)
     Route: 048
     Dates: start: 2017

REACTIONS (1)
  - Feeling abnormal [Unknown]
